FAERS Safety Report 8520346-5 (Version None)
Quarter: 2012Q3

REPORT INFORMATION
  Report Type: 
  Country: None (occurrence: None)
  Receive Date: 20120719
  Receipt Date: 20120705
  Transmission Date: 20120928
  Serious: Yes (Hospitalization)
  Sender: FDA-Public Use
  Company Number: DE-COVIDIEN/TYCO HEALTHCARE/MALLINCKRODT-T201202761

PATIENT
  Age: 66 Year
  Sex: Female

DRUGS (2)
  1. PENNSAID [Suspect]
     Indication: BACK PAIN
     Dosage: UNK
     Dates: start: 20110101
  2. COTRIM [Concomitant]
     Indication: CYSTITIS
     Dosage: UNK
     Dates: start: 20110201

REACTIONS (3)
  - RENAL FAILURE ACUTE [None]
  - ANAEMIA HAEMOLYTIC AUTOIMMUNE [None]
  - CYSTITIS [None]
